FAERS Safety Report 5762814-5 (Version None)
Quarter: 2008Q2

REPORT INFORMATION
  Report Type: 
  Country: None (occurrence: None)
  Receive Date: 20080604
  Receipt Date: 20080527
  Transmission Date: 20081010
  Serious: Yes (Other)
  Sender: FDA-Public Use
  Company Number: OSCN-PR-0805S-0299

PATIENT
  Sex: Male

DRUGS (4)
  1. OMNISCAN [Suspect]
     Indication: DRUG USE FOR UNKNOWN INDICATION
     Dosage: SINGLE DOSE,SINGLE DOSE, 20 ML, SINGLE DOSE, NR, SINGLE DOSE
     Dates: start: 20050801, end: 20050801
  2. OMNISCAN [Suspect]
     Indication: DRUG USE FOR UNKNOWN INDICATION
     Dosage: SINGLE DOSE,SINGLE DOSE, 20 ML, SINGLE DOSE, NR, SINGLE DOSE
     Dates: start: 20060601, end: 20060601
  3. OMNISCAN [Suspect]
     Indication: DRUG USE FOR UNKNOWN INDICATION
     Dosage: SINGLE DOSE,SINGLE DOSE, 20 ML, SINGLE DOSE, NR, SINGLE DOSE
     Dates: start: 20060725, end: 20060725
  4. OMNISCAN [Suspect]
     Indication: DRUG USE FOR UNKNOWN INDICATION
     Dosage: SINGLE DOSE,SINGLE DOSE, 20 ML, SINGLE DOSE, NR, SINGLE DOSE
     Dates: start: 20060901, end: 20060901

REACTIONS (1)
  - NEPHROGENIC SYSTEMIC FIBROSIS [None]
